FAERS Safety Report 8119913-2 (Version None)
Quarter: 2012Q1

REPORT INFORMATION
  Report Type: 
  Country: None (occurrence: None)
  Receive Date: 20120203
  Receipt Date: 20120125
  Transmission Date: 20120608
  Serious: Yes (Other)
  Sender: FDA-Public Use
  Company Number: TPA2012A00358

PATIENT
  Age: 60 Year
  Sex: Female
  Weight: 83.0083 kg

DRUGS (12)
  1. PREVACID [Concomitant]
  2. ZOCOR [Concomitant]
  3. HYDROCHLOROTHIAZIDE [Concomitant]
  4. EFFEXOR XR [Concomitant]
  5. PROAIR (FLUTICASONE PROPIONATE) [Concomitant]
  6. TRILIPIX (FENOFIBRATE) [Concomitant]
  7. ZIAC [Concomitant]
  8. EXFORGE [Concomitant]
  9. WELCHOL [Concomitant]
  10. JANUMET [Concomitant]
  11. ACTOS [Suspect]
     Indication: TYPE 2 DIABETES MELLITUS
     Dosage: 30 MG, ORAL, 45 MG, PER ORAL
     Route: 048
     Dates: start: 19990101, end: 20060101
  12. ACTOS [Suspect]
     Indication: TYPE 2 DIABETES MELLITUS
     Dosage: 30 MG, ORAL, 45 MG, PER ORAL
     Route: 048
     Dates: start: 20060101, end: 20120117

REACTIONS (3)
  - BLADDER CANCER [None]
  - BREAST CANCER [None]
  - URINARY TRACT INFECTION [None]
